FAERS Safety Report 8815918 (Version 2)
Quarter: 2015Q2

REPORT INFORMATION
  Report Type: Report from Study
  Country: US (occurrence: US)
  Receive Date: 20120928
  Receipt Date: 20150409
  Transmission Date: 20150821
  Serious: Yes (Death)
  Sender: FDA-Public Use
  Company Number: US-ROCHE-1129841

PATIENT
  Sex: Female

DRUGS (15)
  1. ARANESP [Concomitant]
     Active Substance: DARBEPOETIN ALFA
     Route: 065
  2. TYLENOL [Concomitant]
     Active Substance: ACETAMINOPHEN
     Route: 065
  3. TAGAMET [Concomitant]
     Active Substance: CIMETIDINE
     Route: 065
  4. PROCRIT [Concomitant]
     Active Substance: ERYTHROPOIETIN
     Route: 065
  5. ZOMETA [Concomitant]
     Active Substance: ZOLEDRONIC ACID
     Route: 065
  6. METHOTREXATE [Concomitant]
     Active Substance: METHOTREXATE
     Route: 065
  7. BENADRYL [Concomitant]
     Active Substance: DIPHENHYDRAMINE HYDROCHLORIDE
     Route: 065
  8. ATIVAN [Concomitant]
     Active Substance: LORAZEPAM
     Route: 065
  9. HERCEPTIN [Suspect]
     Active Substance: TRASTUZUMAB
     Indication: BREAST CANCER FEMALE
     Route: 065
  10. TAXOL [Concomitant]
     Active Substance: PACLITAXEL
     Route: 065
  11. ANZEMET [Concomitant]
     Active Substance: DOLASETRON MESYLATE
     Route: 065
  12. CARBOPLATIN. [Concomitant]
     Active Substance: CARBOPLATIN
     Route: 065
  13. REGLAN [Concomitant]
     Active Substance: METOCLOPRAMIDE HYDROCHLORIDE
     Route: 065
  14. KYTRIL [Concomitant]
     Active Substance: GRANISETRON HYDROCHLORIDE
     Route: 065
  15. DECADRON [Concomitant]
     Active Substance: DEXAMETHASONE
     Route: 065

REACTIONS (2)
  - Catheter site bruise [Unknown]
  - Death [Fatal]
